FAERS Safety Report 4720911-7 (Version None)
Quarter: 2005Q3

REPORT INFORMATION
  Report Type: 
  Country: None (occurrence: None)
  Receive Date: 20050719
  Receipt Date: 20050308
  Transmission Date: 20060218
  Serious: Yes (Other)
  Sender: FDA-Public Use
  Company Number: 2004115204

PATIENT
  Sex: Male

DRUGS (2)
  1. CELEBREX [Suspect]
     Indication: PAIN
     Dosage: (200 MG), ORAL
     Route: 048
  2. BEXTRA [Suspect]
     Indication: PAIN
     Dosage: 10 MG 910 MG, 1 IN 1 D), ORAL
     Route: 048
     Dates: start: 20041201

REACTIONS (3)
  - CEREBROVASCULAR ACCIDENT [None]
  - DRUG INEFFECTIVE [None]
  - PAIN [None]
